FAERS Safety Report 5709725-9 (Version None)
Quarter: 2008Q2

REPORT INFORMATION
  Report Type: 
  Country: None (occurrence: None)
  Receive Date: 20080418
  Receipt Date: 20070816
  Transmission Date: 20081010
  Serious: No
  Sender: FDA-Public Use
  Company Number: US-ASTRAZENECA-2007UW19784

PATIENT
  Age: 79 Year
  Sex: Male
  Weight: 65.8 kg

DRUGS (3)
  1. CASODEX [Suspect]
     Indication: PROSTATE CANCER
  2. BLOOD PRESSURE MEDICATION [Concomitant]
  3. VITAMINS [Concomitant]

REACTIONS (1)
  - BLOOD PRESSURE DECREASED [None]
